FAERS Safety Report 7356644-0 (Version None)
Quarter: 2011Q1

REPORT INFORMATION
  Report Type: 
  Country: None (occurrence: None)
  Receive Date: 20110316
  Receipt Date: 20110307
  Transmission Date: 20110831
  Serious: Yes (Death, Hospitalization, Other)
  Sender: FDA-Public Use
  Company Number: PHHO2011IN04291

PATIENT
  Age: 51 Year
  Sex: Female
  Weight: 49 kg

DRUGS (8)
  1. DICLOFENAC SODIUM [Suspect]
     Indication: RHEUMATOID ARTHRITIS
     Dosage: UNK
  2. METFORMIN HYDROCHLORIDE [Concomitant]
  3. METHOTREXATE [Suspect]
     Indication: RHEUMATOID ARTHRITIS
     Dosage: 15 MG, WEEKLY
     Dates: start: 20090606
  4. FOLIC ACID [Concomitant]
  5. PREDNISOLONE [Suspect]
     Indication: RHEUMATOID ARTHRITIS
  6. CALCIUM [Concomitant]
  7. GLIBENCLAMIDE [Concomitant]
  8. NIMESULIDE [Concomitant]

REACTIONS (9)
  - CARDIAC ARREST [None]
  - DIABETES MELLITUS INADEQUATE CONTROL [None]
  - PULMONARY OEDEMA [None]
  - URAEMIC ENCEPHALOPATHY [None]
  - DIABETIC NEPHROPATHY [None]
  - PYELONEPHRITIS [None]
  - BACTERIAL SEPSIS [None]
  - HYDRONEPHROSIS [None]
  - RENAL FAILURE ACUTE [None]
